FAERS Safety Report 9264833 (Version 1)
Quarter: 2013Q2

REPORT INFORMATION
  Report Type: Spontaneous
  Country: US (occurrence: None)
  Receive Date: 20130426
  Receipt Date: 20130426
  Transmission Date: 20140414
  Serious: Yes (Disabling, Other)
  Sender: FDA-Public Use
  Company Number: AUR-APL-2013-03259

PATIENT
  Sex: Female
  Weight: 73.48 kg

DRUGS (2)
  1. GABAPENTIN (GABAPENTIN) [Suspect]
     Indication: PRODUCT USED FOR UNKNOWN INDICATION
     Dosage: 900 MG (300 MG,3 IN 1 D)
     Route: 048
     Dates: start: 20130214, end: 201303
  2. ACETAZOLAMIDE (ACETAZOLAMIDE) [Concomitant]

REACTIONS (3)
  - Abasia [None]
  - Dizziness [None]
  - Drug interaction [None]
